FAERS Safety Report 10149882 (Version 4)
Quarter: 2015Q3

REPORT INFORMATION
  Report Type: Report from Study
  Country: US (occurrence: US)
  Receive Date: 20140502
  Receipt Date: 20150720
  Transmission Date: 20151125
  Serious: Yes (Other)
  Sender: FDA-Public Use
  Company Number: US-SA-2014SA053870

PATIENT
  Age: 51 Year
  Sex: Female

DRUGS (5)
  1. VITAMIN D [Concomitant]
     Active Substance: CHOLECALCIFEROL
  2. AUBAGIO [Suspect]
     Active Substance: TERIFLUNOMIDE
     Indication: MULTIPLE SCLEROSIS
     Dosage: START DATE: AROUND 17-APR-2014?STOP DATE: AROUND 20-APR-2014
     Route: 048
     Dates: start: 20140416
  3. AUBAGIO [Suspect]
     Active Substance: TERIFLUNOMIDE
     Indication: MULTIPLE SCLEROSIS
     Dosage: START DATE: AROUND 17-APR-2014?STOP DATE: AROUND 20-APR-2014
     Route: 048
  4. AUBAGIO [Suspect]
     Active Substance: TERIFLUNOMIDE
     Indication: MULTIPLE SCLEROSIS
     Dosage: START DATE: AROUND 17-APR-2014?STOP DATE: AROUND 20-APR-2014
     Route: 048
     Dates: start: 201404
  5. CYMBALTA [Concomitant]
     Active Substance: DULOXETINE HYDROCHLORIDE

REACTIONS (14)
  - Drug dose omission [Unknown]
  - Muscle spasms [Recovered/Resolved]
  - Migraine [Recovered/Resolved]
  - Pain [Not Recovered/Not Resolved]
  - Vomiting [Recovered/Resolved]
  - Muscle tightness [Recovered/Resolved]
  - Local swelling [Unknown]
  - Vertigo [Recovered/Resolved]
  - Unevaluable event [Unknown]
  - Headache [Recovered/Resolved]
  - Joint lock [Not Recovered/Not Resolved]
  - Hypoaesthesia [Not Recovered/Not Resolved]
  - Abasia [Recovered/Resolved]
  - Vision blurred [Recovered/Resolved]

NARRATIVE: CASE EVENT DATE: 201404
